FAERS Safety Report 9834785 (Version 1)
Quarter: 2014Q1

REPORT INFORMATION
  Report Type: Spontaneous
  Country: US (occurrence: US)
  Receive Date: 20140122
  Receipt Date: 20140122
  Transmission Date: 20141002
  Serious: Yes (Other)
  Sender: FDA-Public Use
  Company Number: US-BAYER-2014-009438

PATIENT
  Age: 39 Year
  Sex: Female
  Weight: 56 kg

DRUGS (9)
  1. YAZ [Suspect]
     Dosage: UNK
  2. YASMIN [Suspect]
     Dosage: UNK
  3. FLUTICASONE [Concomitant]
     Dosage: 50 MCG, UNK
     Route: 045
  4. AMOXICILLIN W/CLAVULANATE POTASSIUM [Concomitant]
     Dosage: 875/125 MG
  5. BENZONATATE [Concomitant]
     Dosage: 100 MG, UNK
  6. CITALOPRAM [Concomitant]
     Dosage: 20 MG, UNK
  7. DEXAMETHASONE [Concomitant]
     Dosage: 1 MG, UNK
  8. CELEXA [Concomitant]
     Dosage: 10 MG, ONCE DAY
  9. DEXPAK [Concomitant]
     Dosage: 1.5 MG FOR 10 DAYS

REACTIONS (1)
  - Deep vein thrombosis [None]
